FAERS Safety Report 5546533-6 (Version None)
Quarter: 2007Q4

REPORT INFORMATION
  Report Type: 
  Country: None (occurrence: None)
  Receive Date: 20071211
  Receipt Date: 20070211
  Transmission Date: 20080405
  Serious: No
  Sender: FDA-Public Use
  Company Number: US-AMGEN-KDL210836

PATIENT
  Sex: Female

DRUGS (1)
  1. ENBREL [Suspect]
     Indication: ANKYLOSING SPONDYLITIS
     Route: 058

REACTIONS (7)
  - FEELING HOT [None]
  - GENERALISED OEDEMA [None]
  - HAEMATOMA [None]
  - HEADACHE [None]
  - LOCALISED INFECTION [None]
  - PRURITUS [None]
  - WOUND [None]
